FAERS Safety Report 17954060 (Version 2)
Quarter: 2020Q3

REPORT INFORMATION
  Report Type: Report from Study
  Country: US (occurrence: US)
  Receive Date: 20200629
  Receipt Date: 20200701
  Transmission Date: 20201103
  Serious: Yes (Death)
  Sender: FDA-Public Use
  Company Number: US-TAIHO ONCOLOGY  INC-EU-2020-02284

PATIENT
  Sex: Male

DRUGS (16)
  1. PROCHLORPERAZINE. [Concomitant]
     Active Substance: PROCHLORPERAZINE
  2. DEXAMETHASONE. [Concomitant]
     Active Substance: DEXAMETHASONE
  3. POTASSIUM [Concomitant]
     Active Substance: POTASSIUM
  4. TRAMADOL. [Concomitant]
     Active Substance: TRAMADOL
  5. OLANZAPINE. [Concomitant]
     Active Substance: OLANZAPINE
  6. FENTANYL. [Concomitant]
     Active Substance: FENTANYL
  7. STIVARGA [Suspect]
     Active Substance: REGORAFENIB
     Indication: PRODUCT USED FOR UNKNOWN INDICATION
  8. POLYETHYLENE GLYCOL [Concomitant]
     Active Substance: POLYETHYLENE GLYCOLS
  9. FUROSEMIDE. [Concomitant]
     Active Substance: FUROSEMIDE
  10. LEVOFLOXACIN. [Concomitant]
     Active Substance: LEVOFLOXACIN
  11. OPDIVO [Concomitant]
     Active Substance: NIVOLUMAB
  12. SPIRONOLACTONE. [Concomitant]
     Active Substance: SPIRONOLACTONE
  13. LONSURF [Suspect]
     Active Substance: TIPIRACIL HYDROCHLORIDE\TRIFLURIDINE
     Indication: COLON CANCER
     Dosage: CYCLE UNKNOWN
     Route: 048
     Dates: start: 20200311, end: 20200501
  14. BUPROPION XL [Concomitant]
     Active Substance: BUPROPION
  15. HYDROMORPHONE [Concomitant]
     Active Substance: HYDROMORPHONE
  16. GABAPENTIN. [Concomitant]
     Active Substance: GABAPENTIN

REACTIONS (1)
  - Disease progression [Fatal]
